FAERS Safety Report 9733953 (Version 1)
Quarter: 2013Q4

REPORT INFORMATION
  Report Type: Spontaneous
  Country: TW (occurrence: TW)
  Receive Date: 20131205
  Receipt Date: 20131205
  Transmission Date: 20140711
  Serious: Yes (Other)
  Sender: FDA-Public Use
  Company Number: ALCN2013TW006011

PATIENT
  Age: 58 Year
  Sex: Female

DRUGS (1)
  1. TOBRADEX [Suspect]
     Indication: POSTOPERATIVE CARE
     Route: 047

REACTIONS (1)
  - Necrotising scleritis [Recovered/Resolved]
